FAERS Safety Report 5979208-X (Version None)
Quarter: 2008Q4

REPORT INFORMATION
  Report Type: 
  Country: None (occurrence: None)
  Receive Date: 20081204
  Receipt Date: 20080507
  Transmission Date: 20090506
  Serious: No
  Sender: FDA-Public Use
  Company Number: US-ABBOTT-08P-163-0450808-00

PATIENT
  Sex: Male
  Weight: 106.69 kg

DRUGS (7)
  1. TRICOR [Suspect]
     Indication: BLOOD TRIGLYCERIDES INCREASED
     Route: 048
     Dates: start: 20080310, end: 20080317
  2. ATORVASTATIN CALCIUM [Suspect]
     Indication: BLOOD CHOLESTEROL
     Route: 048
     Dates: start: 20070301, end: 20080320
  3. ATORVASTATIN CALCIUM [Suspect]
     Dates: start: 20080325, end: 20080504
  4. METFORMIN HCL [Concomitant]
     Indication: DIABETES MELLITUS
     Route: 048
     Dates: start: 20060101
  5. PIOGLITAZONE [Concomitant]
     Indication: DIABETES MELLITUS
     Route: 048
     Dates: start: 20060101
  6. SERTRALINE [Concomitant]
     Indication: ANXIETY
     Route: 048
     Dates: start: 20070101
  7. SERTRALINE [Concomitant]
     Indication: DEPRESSION

REACTIONS (8)
  - ALOPECIA [None]
  - BURNING SENSATION [None]
  - ERYTHEMA [None]
  - EXCORIATION [None]
  - OEDEMA PERIPHERAL [None]
  - PHOTOSENSITIVITY REACTION [None]
  - PRURITUS [None]
  - TENDERNESS [None]
